FAERS Safety Report 9171774 (Version 1)
Quarter: 2013Q1

REPORT INFORMATION
  Report Type: Spontaneous
  Country: US (occurrence: None)
  Receive Date: 20130311
  Receipt Date: 20130311
  Transmission Date: 20140127
  Serious: Yes (Other)
  Sender: FDA-Public Use
  Company Number: 2013PROUSA02603

PATIENT
  Age: 79 Year
  Sex: Male
  Weight: 95.2 kg

DRUGS (3)
  1. PROVENGE (SIPULEUCEL-T) SUSPENSION, 250ML [Suspect]
     Indication: PROSTATE CANCER
     Route: 042
     Dates: start: 20130221, end: 20130221
  2. ALLOPURINOL(ALLOPURINOL) [Concomitant]
  3. LUPRON DEPOT [Concomitant]

REACTIONS (1)
  - Transient ischaemic attack [None]
